FAERS Safety Report 18092825 (Version 1)
Quarter: 2020Q3

REPORT INFORMATION
  Report Type: Spontaneous
  Country: US (occurrence: US)
  Receive Date: 20200730
  Receipt Date: 20200730
  Transmission Date: 20201103
  Serious: No
  Sender: FDA-Public Use
  Company Number: US-INCYTE CORPORATION-2020IN007184

PATIENT

DRUGS (1)
  1. JAKAFI [Suspect]
     Active Substance: RUXOLITINIB
     Indication: THROMBOCYTOPENIA
     Dosage: 1?2 TABLETS 5MG BID
     Route: 048
     Dates: start: 20200129

REACTIONS (2)
  - Off label use [Unknown]
  - Diarrhoea [Unknown]
